FAERS Safety Report 9266079 (Version 1)
Quarter: 2013Q2

REPORT INFORMATION
  Report Type: Spontaneous
  Country: US (occurrence: US)
  Receive Date: 20130501
  Receipt Date: 20130501
  Transmission Date: 20140414
  Serious: No
  Sender: FDA-Public Use
  Company Number: US-009507513-1304USA015607

PATIENT
  Sex: Female

DRUGS (4)
  1. FOSAMAX [Suspect]
     Indication: OSTEOPOROSIS PROPHYLAXIS
     Dosage: 70 MG, ONCE WEEKLY
     Route: 048
  2. FOSAMAX [Suspect]
     Dosage: 70 MG, EVERY OTHER WEEK
     Route: 048
     Dates: end: 20130402
  3. FOSAMAX [Suspect]
     Dosage: 35 MG, UNK
     Route: 048
     Dates: start: 2008
  4. LEVOXYL [Concomitant]

REACTIONS (1)
  - Gastric disorder [Recovered/Resolved]
